FAERS Safety Report 18932291 (Version 3)
Quarter: 2021Q2

REPORT INFORMATION
  Report Type: Report from Study
  Country: RU (occurrence: RU)
  Receive Date: 20210224
  Receipt Date: 20210628
  Transmission Date: 20210717
  Serious: Yes (Hospitalization, Disabling)
  Sender: FDA-Public Use
  Company Number: RU-AMGEN-RUSNI2021026942

PATIENT
  Age: 49 Year
  Sex: Male
  Weight: 77.5 kg

DRUGS (12)
  1. ACIDUM FOLICUM [Concomitant]
     Active Substance: FOLIC ACID
     Dosage: 1 MILLIGRAM
     Route: 048
     Dates: start: 20180103
  2. SEVELAMER [Concomitant]
     Active Substance: SEVELAMER
     Dosage: 1600 MILLIGRAM
     Route: 048
     Dates: start: 20180103
  3. CALCIUM CARBONATE. [Concomitant]
     Active Substance: CALCIUM CARBONATE
     Dosage: 2 GRAM
     Route: 048
     Dates: start: 20191004
  4. EPOETIN ALFA [Concomitant]
     Active Substance: ERYTHROPOIETIN
     Dosage: 3000 INTERNATIONAL UNIT
     Route: 042
     Dates: start: 20190913
  5. FERRIC HYDROXIDE SUCROSE COMPLEX [Concomitant]
     Dosage: 100 MILLIGRAM
     Route: 042
     Dates: start: 20190508
  6. ETELCALCETIDE [Suspect]
     Active Substance: ETELCALCETIDE
     Indication: HYPERPARATHYROIDISM SECONDARY
     Dosage: 5 MILLIGRAM
     Route: 042
     Dates: start: 20180810
  7. INSULIN HUMAN BIOSYNTHETIC [Concomitant]
     Dosage: 4 UNK
     Route: 042
     Dates: start: 20180103, end: 20191231
  8. LOSARTAN. [Concomitant]
     Active Substance: LOSARTAN
     Dosage: 100 MILLIGRAM
     Route: 048
     Dates: start: 20190102, end: 20191231
  9. INSULIN GLARGINE [Concomitant]
     Active Substance: INSULIN GLARGINE
     Dosage: 24 UNK
     Route: 042
     Dates: start: 20180103, end: 20191231
  10. PARICALCITOLUM [Concomitant]
     Dosage: 2.5 MICROGRAM
     Route: 042
     Dates: start: 20190811, end: 20191115
  11. OMEPRAZOLE. [Concomitant]
     Active Substance: OMEPRAZOLE
     Dosage: 20 MILLIGRAM
     Route: 048
     Dates: start: 20180103
  12. ACETYLSALICYLIC ACID [Concomitant]
     Active Substance: ASPIRIN
     Dosage: 100 MILLIGRAM
     Route: 048
     Dates: start: 20190102

REACTIONS (1)
  - Peripheral arterial occlusive disease [Recovered/Resolved]

NARRATIVE: CASE EVENT DATE: 20191115
